FAERS Safety Report 7549807-2 (Version None)
Quarter: 2011Q2

REPORT INFORMATION
  Report Type: 
  Country: None (occurrence: None)
  Receive Date: 20110615
  Receipt Date: 20090226
  Transmission Date: 20111010
  Serious: Yes (Other)
  Sender: FDA-Public Use
  Company Number: PHHY2008AU12230

PATIENT
  Sex: Male

DRUGS (1)
  1. CLOZAPINE [Suspect]
     Indication: SCHIZOPHRENIA
     Dosage: 450 OT, UNK
     Dates: start: 20071022, end: 20090202

REACTIONS (3)
  - NON-HODGKIN'S LYMPHOMA [None]
  - LYMPHOCYTIC LYMPHOMA [None]
  - NEUTROPENIA [None]
